FAERS Safety Report 6858979-4 (Version None)
Quarter: 2010Q3

REPORT INFORMATION
  Report Type: 
  Country: None (occurrence: None)
  Receive Date: 20100719
  Receipt Date: 20080215
  Transmission Date: 20110219
  Serious: No
  Sender: FDA-Public Use
  Company Number: US-PFIZER INC-2008016617

PATIENT
  Age: 36 Year
  Sex: Female

DRUGS (1)
  1. CHANTIX [Suspect]
     Dates: start: 20071201

REACTIONS (1)
  - MALAISE [None]
